FAERS Safety Report 6408767-8 (Version None)
Quarter: 2009Q4

REPORT INFORMATION
  Report Type: 
  Country: None (occurrence: None)
  Receive Date: 20091021
  Receipt Date: 20091013
  Transmission Date: 20100525
  Serious: Yes (Death, Hospitalization)
  Sender: FDA-Public Use
  Company Number: A0811470A

PATIENT
  Age: 76 Year
  Sex: Male
  Weight: 122.7 kg

DRUGS (6)
  1. AVANDIA [Suspect]
     Indication: DIABETES MELLITUS
     Dosage: 4MG PER DAY
     Dates: start: 20010226, end: 20070401
  2. AVANDAMET [Suspect]
     Indication: DIABETES MELLITUS
     Dates: start: 20041201, end: 20050301
  3. ZOCOR [Concomitant]
  4. LOTENSIN [Concomitant]
  5. PRILOSEC [Concomitant]
  6. ASPIRIN [Concomitant]

REACTIONS (1)
  - ARTERIOSCLEROSIS [None]
